FAERS Safety Report 4747220-4 (Version None)
Quarter: 2005Q3

REPORT INFORMATION
  Report Type: 
  Country: None (occurrence: None)
  Receive Date: 20050816
  Receipt Date: 20050503
  Transmission Date: 20060218
  Serious: No
  Sender: FDA-Public Use
  Company Number: S05-USA-02381-01

PATIENT
  Age: 92 Year
  Sex: Female

DRUGS (12)
  1. NAMENDA [Suspect]
     Indication: DEMENTIA ALZHEIMER'S TYPE
     Dosage: 5 MG QD PO
     Route: 048
     Dates: start: 20050410, end: 20050416
  2. NAMENDA [Suspect]
     Indication: DEMENTIA ALZHEIMER'S TYPE
     Dosage: 5 MG BID PO
     Route: 048
     Dates: start: 20050417, end: 20050423
  3. NAMENDA [Suspect]
     Indication: DEMENTIA ALZHEIMER'S TYPE
     Dosage: 15 MG QD PO
     Route: 048
     Dates: start: 20050424, end: 20050430
  4. NAMENDA [Suspect]
     Indication: DEMENTIA ALZHEIMER'S TYPE
     Dosage: 10 MG BID PO
     Route: 048
     Dates: start: 20050501, end: 20050514
  5. ARICEPT [Suspect]
     Indication: DEMENTIA ALZHEIMER'S TYPE
     Dates: start: 20050410, end: 20050413
  6. MICARDIS HCT [Concomitant]
  7. ASPIRIN [Concomitant]
  8. PAXIL [Concomitant]
  9. MULTI-VITAMIN [Concomitant]
  10. VITAMIN C (VITAMIN C) [Concomitant]
  11. GLUCOSAMINE [Concomitant]
  12. CALCIUM GLUCONATE [Concomitant]

REACTIONS (5)
  - CONFUSIONAL STATE [None]
  - CONTUSION [None]
  - FALL [None]
  - PSYCHOMOTOR HYPERACTIVITY [None]
  - SKIN LACERATION [None]
